FAERS Safety Report 6313989-0 (Version None)
Quarter: 2009Q3

REPORT INFORMATION
  Report Type: 
  Country: None (occurrence: None)
  Receive Date: 20090818
  Receipt Date: 20090810
  Transmission Date: 20100115
  Serious: Yes (Hospitalization)
  Sender: FDA-Public Use
  Company Number: PHHY2009FR33485

PATIENT
  Sex: Female

DRUGS (6)
  1. TAREG [Suspect]
     Dosage: 40 MG
     Dates: start: 19990101
  2. CHRONADALATE [Suspect]
     Dosage: UNK
     Dates: start: 19910101
  3. KARDEGIC [Suspect]
     Dosage: UNK
     Dates: start: 19910101
  4. DI-ANTALVIC [Suspect]
     Dosage: UNK
     Dates: start: 19940101
  5. FLECTOR [Suspect]
  6. RHUMATO GEL [Suspect]

REACTIONS (4)
  - LICHENOID KERATOSIS [None]
  - SKIN ATROPHY [None]
  - SKIN LESION [None]
  - TOXIC SKIN ERUPTION [None]
